FAERS Safety Report 9028771 (Version 1)
Quarter: 2013Q1

REPORT INFORMATION
  Report Type: Spontaneous
  Country: US (occurrence: US)
  Receive Date: 20130124
  Receipt Date: 20130124
  Transmission Date: 20140127
  Serious: No
  Sender: FDA-Public Use
  Company Number: US-BAUSCH-2012BL003276

PATIENT
  Age: 45 Year
  Sex: Female

DRUGS (1)
  1. ALAWAY [Suspect]
     Indication: DRY EYE
     Route: 047
     Dates: start: 20120514, end: 20120514

REACTIONS (3)
  - Off label use [Unknown]
  - Blepharitis [Unknown]
  - Foreign body sensation in eyes [Unknown]
